FAERS Safety Report 14127006 (Version 1)
Quarter: 2017Q4

REPORT INFORMATION
  Report Type: Report from Study
  Country: None (occurrence: US)
  Receive Date: 20171026
  Receipt Date: 20171026
  Transmission Date: 20180321
  Serious: Yes (Hospitalization)
  Sender: FDA-Public Use
  Company Number: US-ABBVIE-17K-163-2021059-00

PATIENT
  Age: 66 Year
  Sex: Female

DRUGS (2)
  1. HUMIRA [Suspect]
     Active Substance: ADALIMUMAB
     Indication: COLITIS ULCERATIVE
     Route: 058
     Dates: start: 20160201, end: 20171001
  2. HUMIRA [Suspect]
     Active Substance: ADALIMUMAB
     Indication: ARTHROPATHY
     Route: 058

REACTIONS (14)
  - Ear pain [Unknown]
  - Diarrhoea [Not Recovered/Not Resolved]
  - Anal incontinence [Recovered/Resolved]
  - Lung infection [Not Recovered/Not Resolved]
  - Defaecation urgency [Not Recovered/Not Resolved]
  - Thyroid mass [Not Recovered/Not Resolved]
  - Soft tissue swelling [Unknown]
  - Sputum discoloured [Not Recovered/Not Resolved]
  - Respiratory tract infection [Recovering/Resolving]
  - Diarrhoea [Recovered/Resolved]
  - Haemoptysis [Unknown]
  - Defaecation urgency [Recovered/Resolved]
  - Productive cough [Not Recovered/Not Resolved]
  - Myalgia [Not Recovered/Not Resolved]

NARRATIVE: CASE EVENT DATE: 2016
